FAERS Safety Report 19087371 (Version 2)
Quarter: 2021Q2

REPORT INFORMATION
  Report Type: Spontaneous
  Country: US (occurrence: US)
  Receive Date: 20210402
  Receipt Date: 20210409
  Transmission Date: 20210717
  Serious: Yes (Hospitalization)
  Sender: FDA-Public Use
  Company Number: US-FRESENIUS KABI-FK202103365

PATIENT
  Age: 59 Year
  Sex: Female
  Weight: 73.3 kg

DRUGS (3)
  1. FLUOROURACIL (OTHER MANUFACTURER) [Suspect]
     Active Substance: FLUOROURACIL
     Indication: CHOLANGIOCARCINOMA
     Dosage: 5FU (INTAS PHARMACEUTICALS)?Q2W
     Route: 042
     Dates: start: 20201013, end: 20210302
  2. FOLINIC ACID [Suspect]
     Active Substance: LEUCOVORIN
     Indication: CHOLANGIOCARCINOMA
     Dosage: Q2W
     Route: 042
     Dates: start: 20201013, end: 20210302
  3. IRINOTECAN [Suspect]
     Active Substance: IRINOTECAN
     Indication: CHOLANGIOCARCINOMA
     Dosage: NANOLIPOSOMAL IRINOTECAN?Q2W
     Route: 042
     Dates: start: 20201013, end: 20210302

REACTIONS (2)
  - Neutropenia [Unknown]
  - Pyrexia [Recovered/Resolved]

NARRATIVE: CASE EVENT DATE: 20210317
